FAERS Safety Report 4429995-7 (Version None)
Quarter: 2004Q3

REPORT INFORMATION
  Report Type: 
  Country: None (occurrence: None)
  Receive Date: 20040818
  Receipt Date: 20040803
  Transmission Date: 20050211
  Serious: Yes (Death)
  Sender: FDA-Public Use
  Company Number: 2004S1002306

PATIENT
  Age: 54 Year
  Sex: Male

DRUGS (5)
  1. CLOZAPINE [Suspect]
     Dosage: 300MG BID, ORAL
     Route: 048
  2. HALOPERIDOL [Concomitant]
  3. HEXAVITAMIN [Concomitant]
  4. LAMOTRIGINE [Concomitant]
  5. LANSOPRAZOLE [Concomitant]

REACTIONS (1)
  - DEATH [None]
